FAERS Safety Report 6090320-X (Version None)
Quarter: 2009Q1

REPORT INFORMATION
  Report Type: 
  Country: None (occurrence: None)
  Receive Date: 20090224
  Receipt Date: 20081222
  Transmission Date: 20090719
  Serious: No
  Sender: FDA-Public Use
  Company Number: US-ABBOTT-08P-163-0494296-00

PATIENT
  Sex: Male

DRUGS (2)
  1. SIMCOR [Suspect]
     Indication: DRUG USE FOR UNKNOWN INDICATION
     Dosage: ONE PILL DAILY
     Dates: start: 20080901, end: 20081201
  2. SIMCOR [Suspect]
     Dosage: TWO PILLS DAILY
     Dates: start: 20081201

REACTIONS (3)
  - FEELING HOT [None]
  - FLUSHING [None]
  - MEMORY IMPAIRMENT [None]
